FAERS Safety Report 6739746-9 (Version None)
Quarter: 2010Q2

REPORT INFORMATION
  Report Type: 
  Country: None (occurrence: None)
  Receive Date: 20100521
  Receipt Date: 20100506
  Transmission Date: 20101027
  Serious: No
  Sender: FDA-Public Use
  Company Number: 2010050008

PATIENT
  Age: 48 Year
  Sex: Male

DRUGS (9)
  1. ONSOLIS [Suspect]
     Dosage: BU
     Route: 002
  2. DARVOCET [Concomitant]
  3. MORPHINE [Concomitant]
  4. MS CONTIN [Concomitant]
  5. VICODIN (HYDROCODONE BITRATE, ACETAMINIOHEN) [Concomitant]
  6. PERCOCET [Concomitant]
  7. NEURONTIN [Concomitant]
  8. HYCODAN (HYDROCODONE BITARTRATE, HOMATROPINE METHYLBROMIDE) [Concomitant]
  9. ..... [Concomitant]

REACTIONS (1)
  - INTERCEPTED DRUG DISPENSING ERROR [None]
